FAERS Safety Report 19911743 (Version 3)
Quarter: 2021Q4

REPORT INFORMATION
  Report Type: Spontaneous
  Country: JP (occurrence: JP)
  Receive Date: 20211004
  Receipt Date: 20211102
  Transmission Date: 20220303
  Serious: Yes (Hospitalization)
  Sender: FDA-Public Use
  Company Number: JP-NBI-J202118947BIPI

PATIENT

DRUGS (1)
  1. OFEV [Suspect]
     Active Substance: NINTEDANIB
     Indication: Interstitial lung disease
     Route: 048
     Dates: start: 202006, end: 202011

REACTIONS (1)
  - Pneumonia pseudomonal [Recovered/Resolved]

NARRATIVE: CASE EVENT DATE: 20210801
